FAERS Safety Report 6813918-7 (Version None)
Quarter: 2010Q3

REPORT INFORMATION
  Report Type: 
  Country: None (occurrence: None)
  Receive Date: 20100702
  Receipt Date: 20100618
  Transmission Date: 20110219
  Serious: Yes (Other)
  Sender: FDA-Public Use
  Company Number: GB-RANBAXY-2010RR-35301

PATIENT
  Age: 27 Year
  Sex: Male

DRUGS (2)
  1. SUMATRIPTAN 50 MG FILM-COATED TABLETS [Suspect]
     Indication: MIGRAINE
     Dosage: 50 MG, UNK
     Route: 048
     Dates: start: 20100608, end: 20100608
  2. ACETAMINOPHEN [Concomitant]
     Indication: HEADACHE
     Dosage: 1 G, PRN
     Route: 048

REACTIONS (4)
  - DYSPHAGIA [None]
  - NASAL DISCOMFORT [None]
  - NAUSEA [None]
  - PHARYNGEAL OEDEMA [None]
